FAERS Safety Report 8161417-5 (Version None)
Quarter: 2012Q1

REPORT INFORMATION
  Report Type: 
  Country: None (occurrence: None)
  Receive Date: 20120224
  Receipt Date: 20120104
  Transmission Date: 20120608
  Serious: No
  Sender: FDA-Public Use
  Company Number: US-MYLANLABS-2012S1000445

PATIENT
  Age: 83 Year
  Sex: Female

DRUGS (1)
  1. BUDESONIDE [Suspect]
     Indication: IRRITABLE BOWEL SYNDROME
     Route: 048
     Dates: start: 20110801

REACTIONS (2)
  - ALOPECIA [None]
  - FACE OEDEMA [None]
